FAERS Safety Report 6034215-6 (Version None)
Quarter: 2009Q1

REPORT INFORMATION
  Report Type: 
  Country: None (occurrence: None)
  Receive Date: 20090112
  Receipt Date: 20090105
  Transmission Date: 20090719
  Serious: Yes (Hospitalization, Other)
  Sender: FDA-Public Use
  Company Number: US-AMGEN-QUU326894

PATIENT
  Sex: Female

DRUGS (1)
  1. ENBREL [Suspect]
     Indication: RHEUMATOID ARTHRITIS
     Route: 058
     Dates: start: 20040901

REACTIONS (3)
  - GASTROINTESTINAL ULCER HAEMORRHAGE [None]
  - SKIN INDURATION [None]
  - STAPHYLOCOCCAL INFECTION [None]
